FAERS Safety Report 13270493 (Version 1)
Quarter: 2017Q1

REPORT INFORMATION
  Report Type: Report from Study
  Country: FR (occurrence: FR)
  Receive Date: 20170224
  Receipt Date: 20170224
  Transmission Date: 20170428
  Serious: Yes (Hospitalization)
  Sender: FDA-Public Use
  Company Number: PHHO2017FR003769

PATIENT
  Age: 16 Year
  Sex: Male

DRUGS (2)
  1. LEE011 [Suspect]
     Active Substance: RIBOCICLIB
     Indication: T-CELL TYPE ACUTE LEUKAEMIA
     Dosage: 260 MG, UNK
     Route: 048
     Dates: start: 20161208
  2. AFINITOR [Suspect]
     Active Substance: EVEROLIMUS
     Indication: T-CELL TYPE ACUTE LEUKAEMIA
     Dosage: 4 MG, UNK
     Route: 048
     Dates: start: 20161208

REACTIONS (2)
  - Asthenia [Recovered/Resolved]
  - Vertigo [Recovered/Resolved]

NARRATIVE: CASE EVENT DATE: 20170130
